FAERS Safety Report 7131303-8 (Version None)
Quarter: 2010Q4

REPORT INFORMATION
  Report Type: 
  Country: None (occurrence: None)
  Receive Date: 20101201
  Receipt Date: 20101118
  Transmission Date: 20110411
  Serious: Yes (Hospitalization)
  Sender: FDA-Public Use
  Company Number: GXKR2010TR13122

PATIENT
  Age: 27 Year
  Sex: Male

DRUGS (5)
  1. SULFAMETHOXAZOLE AND TRIMETHOPRIM [Suspect]
     Dosage: TWICE A DAY
     Route: 048
  2. RIFAMPICIN [Suspect]
     Dosage: 600 MG/DAY
  3. DOXYCYCLINE (NGX) [Suspect]
     Dosage: 100 MG, BID
     Route: 048
  4. VANCOMYCIN [Suspect]
  5. GENTAMICIN (NGX) [Suspect]

REACTIONS (8)
  - AORTIC VALVE REPLACEMENT [None]
  - CANDIDIASIS [None]
  - LEFT VENTRICULAR FAILURE [None]
  - LEUKOCYTOSIS [None]
  - MECHANICAL VENTILATION [None]
  - PYREXIA [None]
  - RESPIRATORY FAILURE [None]
  - UNRESPONSIVE TO STIMULI [None]
